FAERS Safety Report 9719417 (Version 1)
Quarter: 2013Q4

REPORT INFORMATION
  Report Type: Spontaneous
  Country: BR (occurrence: BR)
  Receive Date: 20131127
  Receipt Date: 20131127
  Transmission Date: 20140711
  Serious: Yes (Other)
  Sender: FDA-Public Use
  Company Number: BR-ACCORD-020439

PATIENT
  Age: 49 Year
  Sex: Male

DRUGS (1)
  1. PACLITAXEL/PACLITAXEL LIPOSOME [Suspect]
     Indication: CHEMOTHERAPY
     Route: 042

REACTIONS (2)
  - Pruritus [Recovered/Resolved]
  - Injection site plaque [Recovered/Resolved]
